FAERS Safety Report 4516100-1 (Version None)
Quarter: 2004Q4

REPORT INFORMATION
  Report Type: 
  Country: None (occurrence: None)
  Receive Date: 20041129
  Receipt Date: 20041115
  Transmission Date: 20050328
  Serious: Yes (Hospitalization)
  Sender: FDA-Public Use
  Company Number: 2004240650FR

PATIENT
  Age: 73 Year
  Sex: Male
  Weight: 80 kg

DRUGS (5)
  1. IRINOTECAN HYDROCHLORIDE SOLUTION, STERILE (IRINOTECAN HYDROCHLORIDE) [Suspect]
     Indication: RECTAL CANCER
     Dosage: 360 MG (EVERY 2 MONTHS), INTRAVENOUS
     Route: 042
     Dates: start: 20040722
  2. FLUOROURACIL [Suspect]
     Indication: RECTAL CANCER
     Dosage: SEE IMAGE
     Route: 042
     Dates: start: 20030201
  3. FLUOROURACIL [Suspect]
     Indication: RECTAL CANCER
     Dosage: SEE IMAGE
     Route: 042
     Dates: start: 20040722
  4. CALCIUM LEVOFOLINATE (CALCIUM LEVOFOLINATE) [Suspect]
     Indication: RECTAL CANCER
     Dosage: 400 MG (EVERY 2 MONTHS), INTRAVENOUS
     Route: 042
     Dates: start: 20030201
  5. CETUXIMAB (CETUXIMAB) [Suspect]
     Indication: RECTAL CANCER
     Dosage: SEE IMAGE
     Route: 042

REACTIONS (7)
  - LOCALISED SKIN REACTION [None]
  - PAIN [None]
  - PRURITUS [None]
  - RASH ERYTHEMATOUS [None]
  - RASH PAPULAR [None]
  - SCAB [None]
  - SKIN ULCER [None]
